FAERS Safety Report 7681664-6 (Version None)
Quarter: 2011Q3

REPORT INFORMATION
  Report Type: 
  Country: None (occurrence: None)
  Receive Date: 20110812
  Receipt Date: 20110803
  Transmission Date: 20111222
  Serious: Yes (Other)
  Sender: FDA-Public Use
  Company Number: CN-ASTRAZENECA-2011SE46144

PATIENT
  Age: 54 Year
  Sex: Male
  Weight: 55 kg

DRUGS (6)
  1. LIDOCAINE [Suspect]
     Dates: start: 20020617
  2. LIDOCAINE [Suspect]
     Dates: start: 20020617
  3. LIDOCAINE [Suspect]
     Indication: EPIDURAL ANAESTHESIA
     Route: 008
     Dates: start: 20020101
  4. LIDOCAINE [Suspect]
     Indication: LOCAL ANAESTHESIA
     Route: 008
     Dates: start: 20020101
  5. DUFEI MIXTURE [Concomitant]
  6. MIDAZOLAM HCL [Concomitant]

REACTIONS (1)
  - RENAL FAILURE ACUTE [None]
